FAERS Safety Report 8385247-4 (Version None)
Quarter: 2012Q2

REPORT INFORMATION
  Report Type: 
  Country: None (occurrence: None)
  Receive Date: 20120525
  Receipt Date: 20120509
  Transmission Date: 20120825
  Serious: No
  Sender: FDA-Public Use
  Company Number: US-BIOGENIDEC-2011BI036710

PATIENT
  Sex: Female

DRUGS (5)
  1. AVONEX [Concomitant]
     Indication: MULTIPLE SCLEROSIS
     Route: 030
  2. TYSABRI [Suspect]
     Route: 042
     Dates: start: 20100412
  3. COPAXONE [Concomitant]
     Indication: MULTIPLE SCLEROSIS
  4. AMPYRA [Concomitant]
     Indication: GAIT DISTURBANCE
     Dates: start: 20100401
  5. TYSABRI [Suspect]
     Indication: MULTIPLE SCLEROSIS
     Route: 042
     Dates: start: 20071210, end: 20081110

REACTIONS (16)
  - HYPERTENSION [None]
  - URINARY TRACT INFECTION [None]
  - SKIN TURGOR DECREASED [None]
  - AMNESIA [None]
  - VISION BLURRED [None]
  - GAIT DISTURBANCE [None]
  - MULTIPLE SCLEROSIS RELAPSE [None]
  - PARAESTHESIA [None]
  - BALANCE DISORDER [None]
  - DIZZINESS [None]
  - GENERAL SYMPTOM [None]
  - CONTUSION [None]
  - VEIN DISORDER [None]
  - ARTHRALGIA [None]
  - TUNNEL VISION [None]
  - FALL [None]
